FAERS Safety Report 8052638 (Version 12)
Quarter: 2013Q2

REPORT INFORMATION
  Report Type: Spontaneous
  Country: US (occurrence: US)
  Receive Date: 20110725
  Receipt Date: 20130513
  Transmission Date: 20140414
  Serious: Yes (Life-Threatening, Hospitalization, Congenital Anomaly, Other)
  Sender: FDA-Public Use
  Company Number: US-PFIZER INC-2011159707

PATIENT
  Sex: Female
  Weight: 4 kg

DRUGS (32)
  1. ZOLOFT [Suspect]
     Indication: DEPRESSION
     Dosage: UNK, ONCE DAILY
     Route: 064
     Dates: end: 2005
  2. ZOLOFT [Suspect]
     Dosage: 50 MG, 1X/DAY
     Route: 064
     Dates: start: 2005
  3. ZOLOFT [Suspect]
     Dosage: 100 MG, 1X/DAY
     Route: 064
  4. SERTRALINE HCL [Suspect]
     Indication: DEPRESSION
     Dosage: UNK, ONCE DAILY
     Route: 064
     Dates: end: 2005
  5. SERTRALINE HCL [Suspect]
     Dosage: 50 MG, 1X/DAY
     Route: 064
     Dates: start: 2005
  6. SERTRALINE HCL [Suspect]
     Dosage: 100 MG, 1X/DAY
     Route: 064
  7. PROMETHAZINE [Concomitant]
     Indication: NAUSEA
     Dosage: 25 MG, 4X/DAY
     Route: 064
     Dates: start: 20050617
  8. PROMETHAZINE [Concomitant]
     Indication: VOMITING
  9. PERCOCET [Concomitant]
     Indication: MUSCULOSKELETAL CHEST PAIN
     Dosage: UNK
     Route: 064
     Dates: start: 20051214
  10. PRENATAL VITAMINS [Concomitant]
     Dosage: UNK
     Route: 064
  11. TYLENOL [Concomitant]
     Indication: HEADACHE
     Dosage: UNK
     Route: 064
     Dates: start: 20050616
  12. ZANTAC [Concomitant]
     Indication: DYSPEPSIA
     Dosage: UNK
     Route: 064
     Dates: start: 20060212
  13. AMBIEN [Concomitant]
     Dosage: 5 MG, UNK
     Route: 064
     Dates: start: 20060212, end: 20060214
  14. BRETHINE [Concomitant]
     Dosage: 1 MG/ML
     Route: 064
     Dates: start: 20060212
  15. PENICILLIN G POTASSIUM [Concomitant]
     Dosage: 5 MILLIONIU, UNK
     Route: 064
     Dates: start: 20060212
  16. PENICILLIN G POTASSIUM [Concomitant]
     Dosage: 3 MILLIONIU, UNK
     Route: 064
     Dates: start: 20060212, end: 20060214
  17. FENTANYL [Concomitant]
     Indication: PAIN
     Dosage: 50 MCG/ML
     Route: 064
     Dates: start: 20060212, end: 20060214
  18. FENTANYL [Concomitant]
     Dosage: 25 MCG/ML
     Route: 064
     Dates: start: 20060213
  19. NUBAIN [Concomitant]
     Indication: PAIN
     Dosage: 10 MG/ML
     Route: 064
     Dates: start: 20060212, end: 20060214
  20. HYDROXYZINE PAMOATE [Concomitant]
     Indication: ANXIETY
     Dosage: 50 MG, UNK
     Route: 064
     Dates: start: 20060212, end: 20060214
  21. HYDROXYZINE HYDROCHLORIDE [Concomitant]
     Indication: NAUSEA
     Dosage: 50 MG/ML
     Route: 064
     Dates: start: 20060212, end: 20060214
  22. PITOCIN [Concomitant]
     Dosage: 20 UNITS/ML
     Route: 064
     Dates: start: 20060212, end: 20060214
  23. OXYCODONE [Concomitant]
     Indication: PAIN
     Dosage: 5 MG, UNK
     Route: 064
     Dates: start: 20060213
  24. REGLAN [Concomitant]
     Dosage: 10 MG, UNK
     Route: 064
     Dates: start: 20060213, end: 20060214
  25. PEPCID [Concomitant]
     Dosage: 20 MG, UNK
     Route: 064
     Dates: start: 20060213
  26. BICITRA [Concomitant]
     Dosage: UNK
     Route: 064
     Dates: start: 20060213
  27. EPHEDRINE [Concomitant]
     Dosage: 50 MG/ML
     Route: 064
     Dates: start: 20060213, end: 20060214
  28. DIPHENHYDRAMINE [Concomitant]
     Dosage: 50 MG/ML
     Route: 064
     Dates: start: 20060213, end: 20060214
  29. MORPHINE [Concomitant]
     Dosage: 1 MG/ML
     Route: 064
     Dates: start: 20060213, end: 20060214
  30. ZOFRAN [Concomitant]
     Indication: NAUSEA
     Dosage: 4 MG, UNK
     Route: 064
     Dates: start: 20060213, end: 20060214
  31. MULTIVITAMINS [Concomitant]
     Dosage: UNK
     Route: 064
  32. VICODIN [Concomitant]
     Indication: MUSCULOSKELETAL CHEST PAIN
     Dosage: UNK
     Route: 064
     Dates: start: 20051208

REACTIONS (26)
  - Maternal exposure timing unspecified [Unknown]
  - Congenital anomaly [Unknown]
  - VACTERL syndrome [Unknown]
  - Anal atresia [Unknown]
  - Female genital tract fistula [Unknown]
  - Persistent cloaca [Unknown]
  - Vesicoureteric reflux [Unknown]
  - Patent ductus arteriosus [Unknown]
  - Aortic valve incompetence [Unknown]
  - Tricuspid valve incompetence [Unknown]
  - Mitral valve incompetence [Unknown]
  - Caudal regression syndrome [Unknown]
  - Syringomyelia [Unknown]
  - Ventricular septal defect [Unknown]
  - Congenital ectopic bladder [Unknown]
  - Congenital genitourinary abnormality [Unknown]
  - Tethered cord syndrome [Unknown]
  - Conus medullaris syndrome [Unknown]
  - Spina bifida occulta [Unknown]
  - Atrial septal defect [Unknown]
  - Anorectal stenosis [Unknown]
  - Neurogenic bladder [Unknown]
  - Pyelocaliectasis [Unknown]
  - Anal prolapse [Unknown]
  - Constipation [Unknown]
  - Urinary incontinence [Unknown]
